FAERS Safety Report 9200667 (Version 2)
Quarter: 2013Q2

REPORT INFORMATION
  Report Type: Spontaneous
  Country: DK (occurrence: DK)
  Receive Date: 20130331
  Receipt Date: 20130420
  Transmission Date: 20140414
  Serious: Yes (Death, Hospitalization)
  Sender: FDA-Public Use
  Company Number: DK-TEVA-393968ISR

PATIENT
  Age: 43 Year
  Sex: Male
  Weight: 83 kg

DRUGS (6)
  1. CITALOPRAM ^TEVA^ [Suspect]
     Indication: DEPRESSION
     Dosage: 40 MILLIGRAM DAILY;
     Route: 048
  2. CHLORPROTHIXENE [Concomitant]
  3. OXAZEPAM [Concomitant]
  4. DIAZEPAM [Concomitant]
  5. METADONE [Concomitant]
  6. OLANZAPINE [Concomitant]

REACTIONS (3)
  - Death [Fatal]
  - Toxicity to various agents [Fatal]
  - Psychotic disorder [None]
